FAERS Safety Report 6279967-5 (Version None)
Quarter: 2009Q3

REPORT INFORMATION
  Report Type: 
  Country: None (occurrence: None)
  Receive Date: 20090723
  Receipt Date: 20090306
  Transmission Date: 20100115
  Serious: No
  Sender: FDA-Public Use
  Company Number: US-AMGEN-KDL337514

PATIENT
  Age: 58 Year
  Sex: Male
  Weight: 67.6 kg

DRUGS (6)
  1. PROCRIT [Suspect]
     Indication: RENAL FAILURE CHRONIC
     Route: 058
     Dates: start: 20090129, end: 20090222
  2. PLAVIX [Concomitant]
  3. ZOCOR [Concomitant]
  4. VITAMIN D [Concomitant]
  5. COREG [Concomitant]
  6. IRON [Concomitant]

REACTIONS (5)
  - ASTHENIA [None]
  - DECREASED APPETITE [None]
  - DIZZINESS [None]
  - HEART RATE INCREASED [None]
  - HYPERTENSION [None]
